FAERS Safety Report 8835758 (Version 2)
Quarter: 2012Q4

REPORT INFORMATION
  Report Type: Report from Study
  Country: JP (occurrence: JP)
  Receive Date: 20121011
  Receipt Date: 20121111
  Transmission Date: 20130627
  Serious: Yes (Other)
  Sender: FDA-Public Use
  Company Number: PHHY2012JP087794

PATIENT
  Age: 83 Year
  Sex: Male
  Weight: 75 kg

DRUGS (5)
  1. VALSARTAN, AMLODIPINE [Suspect]
     Indication: HYPERTENSION
     Dosage: 1 DF, daily
     Route: 048
     Dates: start: 20100602
  2. MOHRUS [Suspect]
     Dosage: 120 mg, daily
     Route: 061
     Dates: start: 20100713, end: 20101112
  3. BUFFERIN [Concomitant]
     Dosage: 81 mg, UNK
     Route: 048
     Dates: start: 20070608
  4. ATOLANT [Concomitant]
     Route: 061
     Dates: start: 20100602, end: 20100701
  5. FUROSEMIDE [Concomitant]
     Dosage: 10 mg, daily

REACTIONS (10)
  - Cardiac failure congestive [Recovering/Resolving]
  - Cardiac hypertrophy [Recovering/Resolving]
  - Asthma [Recovered/Resolved]
  - Breath sounds abnormal [Unknown]
  - Productive cough [Unknown]
  - Cough [Unknown]
  - Blood pressure decreased [Recovering/Resolving]
  - Ligament sprain [Recovered/Resolved]
  - Dermatitis allergic [Recovered/Resolved]
  - Contusion [Recovered/Resolved]
